FAERS Safety Report 22000614 (Version 1)
Quarter: 2023Q1

REPORT INFORMATION
  Report Type: Spontaneous
  Country: US (occurrence: None)
  Receive Date: 20230215
  Receipt Date: 20230215
  Transmission Date: 20230417
  Serious: Yes (Death)
  Sender: FDA-Public Use
  Company Number: None

PATIENT
  Age: 78 Year
  Sex: Male
  Weight: 75.9 kg

DRUGS (4)
  1. KEYTRUDA [Suspect]
     Active Substance: PEMBROLIZUMAB
     Indication: Lung neoplasm malignant
     Dosage: FREQUENCY : EVERY THREE WEEKS;?
     Route: 042
     Dates: start: 20220531, end: 20221220
  2. KEYTRUDA [Suspect]
     Active Substance: PEMBROLIZUMAB
     Indication: Metastatic squamous cell carcinoma
  3. GEMCITABINE [Concomitant]
     Active Substance: GEMCITABINE
     Dates: start: 20220531, end: 20221220
  4. CARBOPLATIN [Concomitant]
     Active Substance: CARBOPLATIN
     Dates: start: 20220531, end: 20221220

REACTIONS (14)
  - Pneumonitis [None]
  - Dyspnoea [None]
  - Cough [None]
  - Pyrexia [None]
  - Sepsis [None]
  - Pneumonia [None]
  - Respiratory gas exchange disorder [None]
  - Hypotension [None]
  - Lung infiltration [None]
  - Oxygen consumption decreased [None]
  - Barotrauma [None]
  - Subcutaneous emphysema [None]
  - Pneumothorax [None]
  - Respiratory failure [None]

NARRATIVE: CASE EVENT DATE: 20230106
